FAERS Safety Report 9236912 (Version 2)
Quarter: 2013Q2

REPORT INFORMATION
  Report Type: Spontaneous
  Country: DK (occurrence: DK)
  Receive Date: 20130417
  Receipt Date: 20130502
  Transmission Date: 20140414
  Serious: Yes (Life-Threatening, Hospitalization, Other)
  Sender: FDA-Public Use
  Company Number: DK-UCBSA-082696

PATIENT
  Age: 72 Year
  Sex: Male
  Weight: 75 kg

DRUGS (5)
  1. VIMPAT [Suspect]
     Indication: EPILEPSY
     Route: 048
     Dates: start: 20130131, end: 20130410
  2. KEPPRA [Suspect]
  3. KEPPRA [Suspect]
     Dosage: DOSE REDUCED
     Dates: end: 2013
  4. CLOPIDOGREL [Concomitant]
  5. SIMVASTATIN [Concomitant]

REACTIONS (7)
  - Depression [Unknown]
  - Suicide attempt [Recovering/Resolving]
  - Partial seizures [Recovering/Resolving]
  - Psychomotor skills impaired [Unknown]
  - Obsessive-compulsive personality disorder [Unknown]
  - Fatigue [Unknown]
  - Depressed mood [Unknown]
